FAERS Safety Report 4324883-9 (Version None)
Quarter: 2004Q1

REPORT INFORMATION
  Report Type: 
  Country: None (occurrence: None)
  Receive Date: 20040323
  Receipt Date: 20040309
  Transmission Date: 20041129
  Serious: Yes (Other)
  Sender: FDA-Public Use
  Company Number: 2004008275

PATIENT
  Age: 68 Year
  Sex: Male
  Weight: 70 kg

DRUGS (8)
  1. PRAZOSIN GITS [Suspect]
     Indication: BENIGN PROSTATIC HYPERPLASIA
     Dosage: ORAL
     Route: 048
     Dates: start: 20031222, end: 20040118
  2. PRAZOSIN GITS [Suspect]
     Indication: BRADYCARDIA
     Dosage: ORAL
     Route: 048
     Dates: start: 20031222, end: 20040118
  3. PRAZOSIN GITS [Suspect]
     Indication: HYPERTENSION
     Dosage: ORAL
     Route: 048
     Dates: start: 20031222, end: 20040118
  4. IMIDAPRIL (IMIDAPRIL) [Concomitant]
  5. ACETAMINOPHEN [Concomitant]
  6. FLUTICASONE PROPIONATE [Concomitant]
  7. BENDROFLUMETHIAZIDE (BENDROFLUMETHIAZIDE) [Concomitant]
  8. ACETYLSALICYLIC ACID SRT [Concomitant]

REACTIONS (2)
  - ELECTROCARDIOGRAM QT CORRECTED INTERVAL PROLONGED [None]
  - HEADACHE [None]
